FAERS Safety Report 8539560-8 (Version None)
Quarter: 2012Q3

REPORT INFORMATION
  Report Type: 
  Country: None (occurrence: None)
  Receive Date: 20120726
  Receipt Date: 20120718
  Transmission Date: 20120928
  Serious: Yes (Hospitalization)
  Sender: FDA-Public Use
  Company Number: US-ELI_LILLY_AND_COMPANY-US201207005943

PATIENT
  Sex: Female

DRUGS (2)
  1. EFFIENT [Suspect]
     Indication: MYOCARDIAL INFARCTION
     Dosage: UNK, UNKNOWN
     Dates: start: 20110101
  2. NEXIUM [Concomitant]
     Dosage: UNK, UNKNOWN

REACTIONS (1)
  - VASCULAR OCCLUSION [None]
